FAERS Safety Report 12994063 (Version 1)
Quarter: 2016Q4

REPORT INFORMATION
  Report Type: Spontaneous
  Country: US (occurrence: US)
  Receive Date: 20161201
  Receipt Date: 20161201
  Transmission Date: 20170207
  Serious: Yes (Life-Threatening, Disabling, Other)
  Sender: FDA-Public Use
  Company Number: None

PATIENT
  Age: 60 Year
  Sex: Female

DRUGS (17)
  1. LEVOTHROXIN [Concomitant]
  2. VITAMIN E [Concomitant]
     Active Substance: .ALPHA.-TOCOPHEROL
  3. LYRICA [Concomitant]
     Active Substance: PREGABALIN
  4. GINGER CAPSULES [Concomitant]
  5. ABILIFY [Concomitant]
     Active Substance: ARIPIPRAZOLE
  6. DILANTIN [Concomitant]
     Active Substance: PHENYTOIN
  7. LOXAPINE. [Suspect]
     Active Substance: LOXAPINE
     Indication: BIPOLAR DISORDER
     Dosage: ?          QUANTITY:6 TABLET(S);?
     Route: 048
  8. ZOLOFT [Concomitant]
     Active Substance: SERTRALINE HYDROCHLORIDE
  9. PROMETHEIS [Concomitant]
  10. DOXAZOSIN [Concomitant]
     Active Substance: DOXAZOSIN\DOXAZOSIN MESYLATE
  11. NEXIUM [Concomitant]
     Active Substance: ESOMEPRAZOLE MAGNESIUM
  12. BACLOFEN. [Concomitant]
     Active Substance: BACLOFEN
  13. ZOFRAN [Concomitant]
     Active Substance: ONDANSETRON HYDROCHLORIDE
  14. OXYCONTIN [Concomitant]
     Active Substance: OXYCODONE HYDROCHLORIDE
  15. TEGRETOL [Concomitant]
     Active Substance: CARBAMAZEPINE
  16. WELLBUTRIN [Concomitant]
     Active Substance: BUPROPION HYDROCHLORIDE
  17. LITHIUM. [Concomitant]
     Active Substance: LITHIUM

REACTIONS (11)
  - Body temperature increased [None]
  - Fall [None]
  - Loss of consciousness [None]
  - Musculoskeletal stiffness [None]
  - Tardive dyskinesia [None]
  - Seizure [None]
  - Pneumonia [None]
  - Sepsis [None]
  - Withdrawal syndrome [None]
  - Rib fracture [None]
  - Hip arthroplasty [None]

NARRATIVE: CASE EVENT DATE: 20160701
